FAERS Safety Report 6299700-0 (Version None)
Quarter: 2009Q3

REPORT INFORMATION
  Report Type: 
  Country: None (occurrence: None)
  Receive Date: 20090806
  Receipt Date: 20090728
  Transmission Date: 20100115
  Serious: Yes (Other)
  Sender: FDA-Public Use
  Company Number: TR-PFIZER INC-2009247525

PATIENT
  Age: 40 Year

DRUGS (1)
  1. SERTRALINE HCL [Suspect]

REACTIONS (1)
  - OROMANDIBULAR DYSTONIA [None]
